FAERS Safety Report 16046585 (Version 1)
Quarter: 2019Q1

REPORT INFORMATION
  Report Type: Spontaneous
  Country: US (occurrence: US)
  Receive Date: 20190307
  Receipt Date: 20190307
  Transmission Date: 20190418
  Serious: Yes (Other)
  Sender: FDA-Public Use
  Company Number: US-SA-2019SA057878

PATIENT
  Age: 9 Year
  Sex: Male

DRUGS (2)
  1. LUMIZYME [Suspect]
     Active Substance: ALGLUCOSIDASE ALFA
     Indication: GLYCOGEN STORAGE DISEASE TYPE II
     Dosage: 20 MG/KG, QOW
     Route: 041
  2. LUMIZYME [Suspect]
     Active Substance: ALGLUCOSIDASE ALFA
     Dosage: 40 MG/KG, QW
     Route: 041

REACTIONS (16)
  - Hypotonia [Unknown]
  - Respiratory distress [Unknown]
  - Pulmonary embolism [Unknown]
  - Procedural complication [Unknown]
  - Central venous catheterisation [Unknown]
  - Pleural effusion [Unknown]
  - Urinary hexose tetrasaccharide increased [Unknown]
  - Device malfunction [Unknown]
  - Mental status changes [Unknown]
  - Supraventricular tachycardia [Unknown]
  - Inappropriate schedule of product administration [Unknown]
  - Superior vena cava syndrome [Recovered/Resolved]
  - Antibody test abnormal [Unknown]
  - Hypercoagulation [Unknown]
  - Venous occlusion [Unknown]
  - Spinal fusion surgery [Unknown]
